FAERS Safety Report 6679683-1 (Version None)
Quarter: 2010Q2

REPORT INFORMATION
  Report Type: 
  Country: None (occurrence: None)
  Receive Date: 20100413
  Receipt Date: 20100309
  Transmission Date: 20101027
  Serious: Yes (Death, Life-Threatening, Other)
  Sender: FDA-Public Use
  Company Number: US-BAXTER-2009BH018383

PATIENT
  Age: 9 Month
  Sex: Female

DRUGS (34)
  1. HEPARIN SODIUM INJECTION [Suspect]
     Indication: INTRAVENOUS CATHETER MANAGEMENT
     Route: 042
     Dates: start: 20070224
  2. HEPARIN SODIUM INJECTION [Suspect]
     Indication: PARENTERAL NUTRITION
     Route: 042
     Dates: start: 20070224
  3. HEPARIN SODIUM INJECTION [Suspect]
     Route: 042
     Dates: start: 20070225, end: 20071114
  4. HEPARIN SODIUM INJECTION [Suspect]
     Route: 042
     Dates: start: 20070225, end: 20071114
  5. HEPARIN SODIUM INJECTION [Suspect]
     Route: 042
     Dates: start: 20070226, end: 20070302
  6. HEPARIN SODIUM INJECTION [Suspect]
     Route: 042
     Dates: start: 20070226, end: 20070302
  7. HEPARIN SODIUM INJECTION [Suspect]
     Route: 042
     Dates: start: 20070401, end: 20070501
  8. HEPARIN SODIUM INJECTION [Suspect]
     Route: 042
     Dates: start: 20070401, end: 20070501
  9. HEPARIN SODIUM INJECTION [Suspect]
     Route: 042
     Dates: start: 20070501, end: 20071201
  10. HEPARIN SODIUM INJECTION [Suspect]
     Route: 042
     Dates: start: 20070501, end: 20071201
  11. HEPARIN SODIUM INJECTION [Suspect]
     Route: 042
     Dates: start: 20071101, end: 20071207
  12. HEPARIN SODIUM INJECTION [Suspect]
     Route: 042
     Dates: start: 20071101, end: 20071207
  13. HEPARIN SODIUM INJECTION [Suspect]
     Route: 042
     Dates: start: 20071012
  14. HEPARIN SODIUM INJECTION [Suspect]
     Route: 042
     Dates: start: 20071012
  15. TOPIRAMATE [Concomitant]
     Indication: DRUG USE FOR UNKNOWN INDICATION
     Route: 065
  16. FERROUS SULFATE TAB [Concomitant]
     Indication: DRUG USE FOR UNKNOWN INDICATION
     Route: 065
  17. FOLIC ACID [Concomitant]
     Indication: DRUG USE FOR UNKNOWN INDICATION
     Route: 065
  18. FAT EMULSIONS [Concomitant]
     Indication: DRUG USE FOR UNKNOWN INDICATION
     Route: 065
  19. TPN ELECTROLYTES IN PLASTIC CONTAINER [Concomitant]
     Indication: DRUG USE FOR UNKNOWN INDICATION
     Route: 042
  20. CIPROFLOXACIN [Concomitant]
     Indication: DRUG USE FOR UNKNOWN INDICATION
     Route: 065
  21. GLUTAMINE [Concomitant]
     Indication: DRUG USE FOR UNKNOWN INDICATION
     Route: 048
  22. RIFAXIMIN [Concomitant]
     Indication: DRUG USE FOR UNKNOWN INDICATION
     Route: 065
  23. SUCRALFATE [Concomitant]
     Indication: DRUG USE FOR UNKNOWN INDICATION
     Route: 065
  24. NOVOSEVEN [Concomitant]
     Indication: DRUG USE FOR UNKNOWN INDICATION
     Route: 065
  25. ZINC OXIDE [Concomitant]
     Indication: DRUG USE FOR UNKNOWN INDICATION
     Route: 065
  26. MARCAINE                                /USA/ [Concomitant]
     Indication: DRUG USE FOR UNKNOWN INDICATION
     Route: 065
  27. AMPHOTERICINE B, LIPOSOME [Concomitant]
     Indication: DRUG USE FOR UNKNOWN INDICATION
     Route: 065
  28. LIDOCAINE [Concomitant]
     Indication: DRUG USE FOR UNKNOWN INDICATION
     Route: 065
  29. AMIKACIN [Concomitant]
     Indication: DRUG USE FOR UNKNOWN INDICATION
     Route: 065
  30. MEROPENEM [Concomitant]
     Indication: DRUG USE FOR UNKNOWN INDICATION
     Route: 065
  31. SILVER NITRATE [Concomitant]
     Indication: DRUG USE FOR UNKNOWN INDICATION
     Route: 061
  32. ACTIGALL [Concomitant]
     Indication: DRUG USE FOR UNKNOWN INDICATION
     Route: 048
  33. CAFFEINE [Concomitant]
     Indication: DRUG USE FOR UNKNOWN INDICATION
     Route: 042
     Dates: start: 20070301, end: 20070301
  34. BACITRACIN [Concomitant]
     Indication: DRUG USE FOR UNKNOWN INDICATION
     Route: 047

REACTIONS (18)
  - ABDOMINAL ADHESIONS [None]
  - BILIARY CIRRHOSIS [None]
  - CEREBRAL HAEMATOMA [None]
  - CEREBRAL HAEMORRHAGE [None]
  - CEREBRAL ISCHAEMIA [None]
  - CHOLESTASIS [None]
  - COAGULOPATHY [None]
  - CONVULSION [None]
  - HYPERSENSITIVITY [None]
  - JAUNDICE [None]
  - LEFT VENTRICULAR HYPERTROPHY [None]
  - NEUTROPENIA [None]
  - PULMONARY CONGESTION [None]
  - PULMONARY OEDEMA [None]
  - RESPIRATORY ARREST [None]
  - SHORT-BOWEL SYNDROME [None]
  - SPLENOMEGALY [None]
  - SUBDURAL HAEMATOMA [None]
